FAERS Safety Report 23468286 (Version 1)
Quarter: 2024Q1

REPORT INFORMATION
  Report Type: Report from Study
  Country: US (occurrence: US)
  Receive Date: 20240201
  Receipt Date: 20240201
  Transmission Date: 20240409
  Serious: Yes (Other)
  Sender: FDA-Public Use
  Company Number: US-ABBVIE-5611563

PATIENT
  Sex: Female

DRUGS (1)
  1. HUMIRA [Suspect]
     Active Substance: ADALIMUMAB
     Indication: Product used for unknown indication
     Route: 058
     Dates: start: 20230125

REACTIONS (7)
  - Visual impairment [Unknown]
  - Uveitis [Unknown]
  - Discomfort [Unknown]
  - Illness [Unknown]
  - Animal scratch [Unknown]
  - Malaise [Unknown]
  - Pyrexia [Unknown]
